FAERS Safety Report 11291800 (Version 1)
Quarter: 2015Q3

REPORT INFORMATION
  Report Type: Spontaneous
  Country: JP (occurrence: JP)
  Receive Date: 20150722
  Receipt Date: 20150722
  Transmission Date: 20151125
  Serious: Yes (Death)
  Sender: FDA-Public Use
  Company Number: JP-SA-2015SA105870

PATIENT
  Age: 71 Year
  Sex: Female
  Weight: 42 kg

DRUGS (1)
  1. FABRAZYME [Suspect]
     Active Substance: AGALSIDASE BETA
     Indication: FABRY^S DISEASE
     Route: 041
     Dates: start: 20040428, end: 20150623

REACTIONS (1)
  - Death [Fatal]

NARRATIVE: CASE EVENT DATE: 20150714
